FAERS Safety Report 20077257 (Version 1)
Quarter: 2021Q4

REPORT INFORMATION
  Report Type: Spontaneous
  Country: US (occurrence: None)
  Receive Date: 20211116
  Receipt Date: 20211116
  Transmission Date: 20220303
  Serious: Yes (Life-Threatening)
  Sender: FDA-Public Use
  Company Number: None

PATIENT
  Age: 62 Year
  Sex: Female

DRUGS (1)
  1. AMBRISENTAN [Suspect]
     Active Substance: AMBRISENTAN
     Indication: Pulmonary arterial hypertension
     Dosage: OTHER FREQUENCY : SEE B.6 (PAGE2);?
     Route: 048
     Dates: start: 20200611

REACTIONS (2)
  - Wound [None]
  - Therapy interrupted [None]

NARRATIVE: CASE EVENT DATE: 20210920
